FAERS Safety Report 8824716 (Version 4)
Quarter: 2014Q1

REPORT INFORMATION
  Report Type: Report from Study
  Country: KR (occurrence: KR)
  Receive Date: 20121004
  Receipt Date: 20140204
  Transmission Date: 20141002
  Serious: Yes (Hospitalization)
  Sender: FDA-Public Use
  Company Number: PHHO2012KR013525

PATIENT
  Sex: 0

DRUGS (18)
  1. EVEROLIMUS [Suspect]
     Indication: RENAL TRANSPLANT
     Dosage: 1.5 MG, QD
     Route: 048
     Dates: start: 20120818, end: 20120821
  2. EVEROLIMUS [Suspect]
     Dosage: 1.75 MG, QD
     Route: 048
     Dates: start: 20120822, end: 20120827
  3. EVEROLIMUS [Suspect]
     Dosage: 2 MG, QD
     Route: 048
     Dates: start: 20120828, end: 20120919
  4. EVEROLIMUS [Suspect]
     Dosage: 1.75 MG, QD
     Route: 048
     Dates: start: 20120920
  5. NEORAL [Suspect]
     Indication: RENAL TRANSPLANT
     Dosage: 112.5 MG, BID
     Route: 048
     Dates: start: 20120827
  6. MYFORTIC [Suspect]
     Indication: RENAL TRANSPLANT
     Dosage: UNK
     Route: 048
  7. TRAZODONE [Concomitant]
     Indication: DEPRESSION
     Dosage: 25 MG, BID
     Route: 048
  8. TENORMIN [Concomitant]
     Indication: PROPHYLAXIS
     Dosage: 50 MG, QD
     Route: 048
     Dates: start: 20120819
  9. FEROBA-YOU [Concomitant]
     Indication: ANAEMIA
     Dosage: 256.26 MG, BID
     Route: 048
  10. PYRIDOXINE [Concomitant]
     Indication: PROPHYLAXIS
     Dosage: 50 MG, QD
     Route: 048
     Dates: start: 20120814
  11. YUHANZID [Concomitant]
     Indication: PROPHYLAXIS
     Dosage: 100 MG, TID
     Route: 048
     Dates: start: 20120814
  12. SEPTRIN [Concomitant]
     Indication: PROPHYLAXIS
     Dosage: 1 DF, QD
     Route: 048
     Dates: start: 20120816
  13. XANAX [Concomitant]
     Indication: DEPRESSION
     Dosage: 0.5 MG, BID
     Route: 048
  14. SIGMART [Concomitant]
     Indication: COARCTATION OF THE AORTA
     Dosage: 5 MG, BID
     Route: 048
  15. FOLIC ACID [Concomitant]
     Indication: ANAEMIA
     Dosage: 1 MG, BID
     Route: 048
  16. MAGNESIUM OXIDE [Concomitant]
     Indication: CONSTIPATION
     Dosage: 250 MG, TID
     Route: 048
     Dates: start: 20120917
  17. METHYLON//METHYLPREDNISOLONE [Concomitant]
     Indication: RENAL TRANSPLANT
     Dosage: 8 MG, QD
     Route: 048
     Dates: start: 20120817
  18. TAGAMET [Concomitant]
     Indication: GASTRITIS ATROPHIC
     Dosage: 200 MG, BID
     Route: 048
     Dates: start: 20120917

REACTIONS (1)
  - Oliguria [Recovered/Resolved]
